FAERS Safety Report 4461928-X (Version None)
Quarter: 2004Q3

REPORT INFORMATION
  Report Type: 
  Country: None (occurrence: None)
  Receive Date: 20040929
  Receipt Date: 20031119
  Transmission Date: 20050211
  Serious: No
  Sender: FDA-Public Use
  Company Number: US-GLAXOSMITHKLINE-A0440386A

PATIENT
  Age: 60 Year
  Sex: Female

DRUGS (4)
  1. SEREVENT [Suspect]
     Indication: ASTHMA
     Dosage: 1PUFF TWICE PER DAY
     Route: 055
     Dates: start: 20031118, end: 20031118
  2. ATROVENT [Concomitant]
  3. SINGULAIR [Concomitant]
  4. THYROID MEDICATION [Concomitant]

REACTIONS (2)
  - ANXIETY [None]
  - DIZZINESS [None]
